FAERS Safety Report 5493483-X (Version None)
Quarter: 2007Q4

REPORT INFORMATION
  Report Type: 
  Country: None (occurrence: None)
  Receive Date: 20071023
  Receipt Date: 20071010
  Transmission Date: 20080405
  Serious: Yes (Other)
  Sender: FDA-Public Use
  Company Number: JP-BAYER-200715836GDS

PATIENT
  Age: 36 Year
  Sex: Female

DRUGS (2)
  1. ASPIRIN [Suspect]
     Indication: ANTIPHOSPHOLIPID ANTIBODIES POSITIVE
     Route: 065
  2. HEPARIN [Suspect]
     Indication: ANTIPHOSPHOLIPID ANTIBODIES POSITIVE
     Route: 065

REACTIONS (3)
  - FOETAL GROWTH RETARDATION [None]
  - FOETAL MALFORMATION [None]
  - STILLBIRTH [None]
